FAERS Safety Report 11404209 (Version 1)
Quarter: 2015Q3

REPORT INFORMATION
  Report Type: Spontaneous
  Country: US (occurrence: None)
  Receive Date: 20150820
  Receipt Date: 20150820
  Transmission Date: 20151125
  Serious: Yes (Other)
  Sender: FDA-Public Use
  Company Number: None

PATIENT
  Age: 26 Year
  Sex: Male
  Weight: 76.2 kg

DRUGS (2)
  1. PREDNISONE. [Concomitant]
     Active Substance: PREDNISONE
  2. CIPROFLOXACIN. [Suspect]
     Active Substance: CIPROFLOXACIN
     Indication: DIARRHOEA
     Route: 048
     Dates: start: 20150813, end: 20150815

REACTIONS (4)
  - Asthenia [None]
  - Arthralgia [None]
  - Musculoskeletal pain [None]
  - Movement disorder [None]

NARRATIVE: CASE EVENT DATE: 20150815
